FAERS Safety Report 4733965-9 (Version None)
Quarter: 2005Q3

REPORT INFORMATION
  Report Type: 
  Country: None (occurrence: None)
  Receive Date: 20050721
  Receipt Date: 20050511
  Transmission Date: 20060218
  Serious: No
  Sender: FDA-Public Use
  Company Number: 2005SP000712

PATIENT
  Age: 53 Year
  Sex: Male
  Weight: 95.2554 kg

DRUGS (4)
  1. LUNESTA [Suspect]
     Indication: INSOMNIA
     Dosage: 3 MG; HS; ORAL
     Route: 048
     Dates: start: 20050509, end: 20050518
  2. CHLORDIAZEPOXIDE W/ AMITRIPTYLINE [Concomitant]
  3. LOVASTATIN [Concomitant]
  4. CENTRUM [Concomitant]

REACTIONS (2)
  - DYSGEUSIA [None]
  - INSOMNIA [None]
